FAERS Safety Report 13685383 (Version 1)
Quarter: 2017Q2

REPORT INFORMATION
  Report Type: Spontaneous
  Country: US (occurrence: US)
  Receive Date: 20170623
  Receipt Date: 20170623
  Transmission Date: 20170830
  Serious: Yes (Hospitalization, Other)
  Sender: FDA-Public Use
  Company Number: US-ASTRAZENECA-2017SE63409

PATIENT
  Age: 21888 Day
  Sex: Male
  Weight: 89.8 kg

DRUGS (7)
  1. CRESTOR [Suspect]
     Active Substance: ROSUVASTATIN CALCIUM
     Indication: BLOOD CHOLESTEROL ABNORMAL
     Route: 048
     Dates: start: 201502
  2. BRILINTA [Suspect]
     Active Substance: TICAGRELOR
     Indication: STENT PLACEMENT
     Route: 048
     Dates: start: 20150212, end: 20170610
  3. AMLODIPINE [Concomitant]
     Active Substance: AMLODIPINE BESYLATE
     Indication: BLOOD PRESSURE ABNORMAL
     Route: 048
     Dates: start: 2016
  4. NEXIUM [Suspect]
     Active Substance: ESOMEPRAZOLE MAGNESIUM
     Indication: GASTROOESOPHAGEAL REFLUX DISEASE
     Route: 048
     Dates: start: 2007
  5. LOSARTAN/ HYDROCHLORATHAZIDE [Concomitant]
     Indication: BLOOD PRESSURE ABNORMAL
     Dosage: 100/25 MG; DAILY
     Route: 048
     Dates: start: 2012
  6. BRILINTA [Suspect]
     Active Substance: TICAGRELOR
     Indication: MYOCARDIAL INFARCTION
     Route: 048
     Dates: start: 20150212, end: 20170610
  7. ASPIRIN. [Concomitant]
     Active Substance: ASPIRIN
     Indication: STENT PLACEMENT
     Route: 048
     Dates: start: 201502

REACTIONS (17)
  - Off label use [Unknown]
  - Myocardial infarction [Unknown]
  - Dizziness [Unknown]
  - Internal haemorrhage [Unknown]
  - Melaena [Unknown]
  - Haemoptysis [Unknown]
  - Drug prescribing error [Unknown]
  - Abdominal pain upper [Unknown]
  - Contusion [Unknown]
  - Fatigue [Unknown]
  - Anxiety [Unknown]
  - Gastrointestinal perforation [Unknown]
  - Ulcer [Unknown]
  - Ulcer haemorrhage [Unknown]
  - Intentional product misuse [Recovered/Resolved]
  - Blood cholesterol abnormal [Unknown]
  - Feeling abnormal [Unknown]

NARRATIVE: CASE EVENT DATE: 20150211
